FAERS Safety Report 4589444-5 (Version None)
Quarter: 2005Q1

REPORT INFORMATION
  Report Type: 
  Country: None (occurrence: None)
  Receive Date: 20050216
  Receipt Date: 20041217
  Transmission Date: 20050727
  Serious: Yes (Hospitalization)
  Sender: FDA-Public Use
  Company Number: 2004-BP-14265BP

PATIENT
  Age: 76 Year
  Sex: Male

DRUGS (3)
  1. MOBIC [Suspect]
     Indication: INTERVERTEBRAL DISC DEGENERATION
     Dosage: 7.5 MG (7.5 MG, QD)
     Route: 048
     Dates: end: 20040930
  2. ACETYLSALICYLIC ACID SRT [Concomitant]
     Route: 048
  3. PLAVIX [Concomitant]

REACTIONS (9)
  - ANAEMIA [None]
  - ASTHENIA [None]
  - DUODENAL ULCER [None]
  - EJECTION FRACTION DECREASED [None]
  - GASTROINTESTINAL HAEMORRHAGE [None]
  - MENTAL STATUS CHANGES [None]
  - PNEUMONIA [None]
  - VASCULAR GRAFT OCCLUSION [None]
  - VENTRICULAR HYPOKINESIA [None]
